FAERS Safety Report 19157129 (Version 1)
Quarter: 2021Q2

REPORT INFORMATION
  Report Type: Report from Study
  Country: IT (occurrence: IT)
  Receive Date: 20210420
  Receipt Date: 20210420
  Transmission Date: 20210717
  Serious: Yes (Hospitalization)
  Sender: FDA-Public Use
  Company Number: IT-TEVA-2021-IT-1901549

PATIENT
  Age: 77 Year
  Sex: Female
  Weight: 42 kg

DRUGS (11)
  1. TRIATEC  5 MG COMPRESSE [Concomitant]
     Active Substance: RAMIPRIL
     Indication: HYPERTENSION
     Dosage: 1DOSAGEFORM
     Route: 048
     Dates: start: 20090622
  2. ZYLORIC [Concomitant]
     Active Substance: ALLOPURINOL
     Indication: HYPERURICAEMIA
     Route: 048
  3. PACLITAXEL TEVA 6 MG/ML, CONCENTRATO PER SOLUZIONE PER INFUSIONE [Suspect]
     Active Substance: PACLITAXEL
     Indication: OVARIAN CANCER
     Dosage: 185MILLIGRAM
     Route: 042
     Dates: start: 20210202, end: 20210202
  4. CARDICOR 10 MG COMPRESSE RIVESTITE CON FILM [Concomitant]
     Indication: CARDIAC FAILURE
     Dosage: 0.5DOSAGEFORM
     Route: 048
  5. DELTACORTENE 25 MG COMPRESSE [Concomitant]
     Active Substance: PREDNISONE
     Dosage: 1DOSAGEFORM
     Route: 048
  6. LASIX [Concomitant]
     Active Substance: FUROSEMIDE
     Indication: HYPERTENSION
     Dosage: 2DOSGAEFORM
     Route: 048
     Dates: start: 20201222
  7. TORVAST 20 MG COMPRESSE RIVESTITE CON FILM [Concomitant]
     Indication: HYPERCHOLESTEROLAEMIA
     Dosage: 1DOSAGEFORM
     Route: 048
     Dates: start: 20090622
  8. CARDIOASPIRIN 100 MG COMPRESSE GASTRORESISTENTI [Concomitant]
     Active Substance: ASPIRIN
     Indication: THROMBOSIS PROPHYLAXIS
     Dosage: 1DOSAGEFORM
     Route: 048
     Dates: start: 20090622
  9. LORAZEPAM SANDOZ [Concomitant]
     Active Substance: LORAZEPAM
     Route: 048
  10. CARBOPLATINO AHCL 10 MG/ML CONCENTRATO PER SOLUZIONE PER INFUSIONE [Concomitant]
     Active Substance: CARBOPLATIN
     Indication: OVARIAN CANCER
     Dosage: 183.2MILLIGRAM
     Route: 042
     Dates: start: 20210112
  11. PANTORC [Concomitant]
     Active Substance: PANTOPRAZOLE SODIUM
     Indication: HYPERCHLORHYDRIA
     Route: 048

REACTIONS (1)
  - Disorientation [Recovered/Resolved]

NARRATIVE: CASE EVENT DATE: 20210202
